FAERS Safety Report 25726726 (Version 1)
Quarter: 2025Q3

REPORT INFORMATION
  Report Type: Spontaneous
  Country: EU (occurrence: EU)
  Receive Date: 20250826
  Receipt Date: 20250826
  Transmission Date: 20251021
  Serious: Yes (Other)
  Sender: SANOFI AVENTIS
  Company Number: EU-MLMSERVICE-20250804-PI601543-00167-1

PATIENT
  Age: 32 Year
  Sex: Female

DRUGS (1)
  1. GLYBURIDE [Suspect]
     Active Substance: GLYBURIDE
     Indication: Weight decreased
     Route: 048

REACTIONS (7)
  - Factitious disorder [Unknown]
  - Hypoglycaemia [Unknown]
  - Prescription drug used without a prescription [Unknown]
  - Discomfort [Unknown]
  - Hyperhidrosis [Unknown]
  - Anxiety [Unknown]
  - Palpitations [Unknown]
